FAERS Safety Report 6923789-6 (Version None)
Quarter: 2010Q3

REPORT INFORMATION
  Report Type: 
  Country: None (occurrence: None)
  Receive Date: 20100813
  Receipt Date: 20100803
  Transmission Date: 20110219
  Serious: Yes (Other)
  Sender: FDA-Public Use
  Company Number: US-ELI_LILLY_AND_COMPANY-US201006002118

PATIENT
  Sex: Male

DRUGS (2)
  1. ZYPREXA [Suspect]
     Dosage: 20 MG, UNKNOWN
     Route: 065
  2. ZYPREXA ZYDIS [Suspect]
     Dosage: 15 MG, UNKNOWN
     Route: 065

REACTIONS (1)
  - GASTROINTESTINAL TUBE INSERTION [None]
